FAERS Safety Report 5708048-1 (Version None)
Quarter: 2008Q2

REPORT INFORMATION
  Report Type: 
  Country: None (occurrence: None)
  Receive Date: 20080417
  Receipt Date: 20080403
  Transmission Date: 20081010
  Serious: Yes (Other)
  Sender: FDA-Public Use
  Company Number: AU-AVENTIS-200811011GDDC

PATIENT
  Age: 79 Year
  Sex: Male

DRUGS (2)
  1. ARAVA [Suspect]
     Indication: RHEUMATOID ARTHRITIS
     Dates: start: 20050620
  2. METHOTREXATE [Concomitant]
     Dosage: DOSE: UNK

REACTIONS (2)
  - ATRIAL FIBRILLATION [None]
  - EMBOLIC STROKE [None]
